FAERS Safety Report 15274256 (Version 2)
Quarter: 2018Q3

REPORT INFORMATION
  Report Type: Spontaneous
  Country: DE (occurrence: DE)
  Receive Date: 20180814
  Receipt Date: 20180814
  Transmission Date: 20181010
  Serious: Yes (Death, Life-Threatening, Other)
  Sender: FDA-Public Use
  Company Number: DE-AUROBINDO-AUR-APL-2018-041088

PATIENT
  Age: 68 Year
  Sex: Male

DRUGS (16)
  1. RISPERIDONE. [Suspect]
     Active Substance: RISPERIDONE
     Dosage: 1.5 MILLIGRAM, DAILY
     Route: 048
     Dates: start: 20171031
  2. RISPERIDONE. [Suspect]
     Active Substance: RISPERIDONE
     Dosage: 2.5 MILLIGRAM, DAILY
     Route: 048
     Dates: start: 20171123, end: 20171123
  3. RISPERIDONE. [Suspect]
     Active Substance: RISPERIDONE
     Dosage: 2 MILLIGRAM, DAILY
     Route: 048
     Dates: start: 20171121, end: 20171122
  4. HALOPERIDOL. [Suspect]
     Active Substance: HALOPERIDOL
     Dosage: 8 MILLIGRAM, DAILY
     Route: 048
     Dates: start: 20171122, end: 20171122
  5. HALOPERIDOL. [Suspect]
     Active Substance: HALOPERIDOL
     Dosage: 17.5 MILLIGRAM, DAILY
     Route: 048
     Dates: start: 20171114, end: 20171114
  6. HALOPERIDOL. [Suspect]
     Active Substance: HALOPERIDOL
     Dosage: 10 MILLIGRAM, DAILY
     Route: 048
     Dates: start: 20171108, end: 20171108
  7. HALOPERIDOL. [Suspect]
     Active Substance: HALOPERIDOL
     Dosage: 2.5 MILLIGRAM, DAILY
     Route: 048
     Dates: start: 20171115, end: 20171115
  8. TAMSULOSIN [Concomitant]
     Active Substance: TAMSULOSIN
     Indication: PRODUCT USED FOR UNKNOWN INDICATION
     Dosage: 0.4 MILLIGRAM, DAILY
     Route: 065
     Dates: start: 20100101
  9. RISPERIDONE. [Suspect]
     Active Substance: RISPERIDONE
     Indication: PRODUCT USED FOR UNKNOWN INDICATION
     Dosage: 3 MILLIGRAM, DAILY
     Route: 048
     Dates: start: 20171124
  10. RISPERIDONE. [Suspect]
     Active Substance: RISPERIDONE
     Dosage: 2 MILLIGRAM, DAILY
     Route: 048
     Dates: start: 20171116, end: 20171119
  11. HALOPERIDOL. [Suspect]
     Active Substance: HALOPERIDOL
     Indication: PRODUCT USED FOR UNKNOWN INDICATION
     Dosage: 5 MILLIGRAM, DAILY
     Route: 048
     Dates: start: 20171116, end: 20171116
  12. HALOPERIDOL. [Suspect]
     Active Substance: HALOPERIDOL
     Dosage: 2.5 MILLIGRAM, DAILY
     Route: 048
     Dates: start: 20171121, end: 20171121
  13. HALOPERIDOL. [Suspect]
     Active Substance: HALOPERIDOL
     Dosage: 7.5 MILLIGRAM, DAILY
     Route: 048
     Dates: start: 20171117, end: 20171119
  14. HALOPERIDOL. [Suspect]
     Active Substance: HALOPERIDOL
     Dosage: 20 MILLIGRAM, DAILY
     Route: 048
     Dates: start: 20171110, end: 20171113
  15. HALOPERIDOL. [Suspect]
     Active Substance: HALOPERIDOL
     Dosage: 2.5 MILLIGRAM, DAILY
     Route: 048
     Dates: start: 20171124
  16. HALOPERIDOL. [Suspect]
     Active Substance: HALOPERIDOL
     Dosage: 15 MILLIGRAM, DAILY
     Route: 048
     Dates: start: 20171109, end: 20171109

REACTIONS (2)
  - Death [Fatal]
  - Pulse absent [Unknown]

NARRATIVE: CASE EVENT DATE: 20171125
